FAERS Safety Report 18462115 (Version 2)
Quarter: 2024Q4

REPORT INFORMATION
  Report Type: Report from Study
  Country: IT (occurrence: IT)
  Receive Date: 20201104
  Receipt Date: 20241217
  Transmission Date: 20250115
  Serious: Yes (Life-Threatening, Disabling, Other)
  Sender: ELI LILLY AND COMPANY
  Company Number: IT-ELI_LILLY_AND_COMPANY-IT202009005974

PATIENT
  Age: 66 Year
  Sex: Male
  Weight: 81 kg

DRUGS (11)
  1. RETEVMO [Suspect]
     Active Substance: SELPERCATINIB
     Indication: Lung neoplasm malignant
     Dosage: 160 MG, BID
     Route: 065
     Dates: start: 20200826, end: 20200929
  2. RETEVMO [Suspect]
     Active Substance: SELPERCATINIB
     Dosage: 80 MG, BID
     Route: 065
  3. EDOXABAN [Concomitant]
     Active Substance: EDOXABAN
     Indication: Embolism
     Dosage: 60 MG, UNKNOWN
     Route: 048
     Dates: start: 20200706
  4. EDOXABAN [Concomitant]
     Active Substance: EDOXABAN
     Dosage: 30 MG, DAILY
     Route: 065
     Dates: start: 20200826
  5. AMLODIPINE [Concomitant]
     Active Substance: AMLODIPINE BESYLATE
     Indication: Hypertension
     Dosage: 5 MG, DAILY
     Route: 048
  6. ETIZOLAM [Concomitant]
     Active Substance: ETIZOLAM
     Indication: Product used for unknown indication
     Dosage: 10 DOSAGE FORM, UNKNOWN
     Route: 048
     Dates: start: 20200915
  7. ETIZOLAM [Concomitant]
     Active Substance: ETIZOLAM
     Dosage: 5 [DRP], UNKNOWN
  8. DELORAZEPAM [Concomitant]
     Active Substance: DELORAZEPAM
     Indication: Anxiety
     Dosage: 15 DOSAGE FORM, UNKNOWN
     Route: 048
     Dates: start: 20200915
  9. DELORAZEPAM [Concomitant]
     Active Substance: DELORAZEPAM
     Dosage: 8 [DRP], UNKNOWN
     Route: 048
  10. EDOXABAN TOSYLATE [Concomitant]
     Active Substance: EDOXABAN TOSYLATE
     Indication: Thrombosis prophylaxis
     Dosage: 60 MG, UNKNOWN
     Route: 048
     Dates: start: 20200706
  11. EDOXABAN TOSYLATE [Concomitant]
     Active Substance: EDOXABAN TOSYLATE
     Dosage: 30 MG, UNKNOWN
     Route: 048
     Dates: start: 20200826

REACTIONS (9)
  - Hepatitis acute [Recovered/Resolved]
  - Hemiparesis [Recovering/Resolving]
  - Pancreatitis [Recovering/Resolving]
  - Hydrocephalus [Unknown]
  - Intracranial pressure increased [Unknown]
  - Asthenia [Unknown]
  - Malignant neoplasm progression [Unknown]
  - Bradycardia [Not Recovered/Not Resolved]
  - Lymphopenia [Recovered/Resolved]

NARRATIVE: CASE EVENT DATE: 20200909
